FAERS Safety Report 7722417-X (Version None)
Quarter: 2011Q3

REPORT INFORMATION
  Report Type: 
  Country: None (occurrence: None)
  Receive Date: 20110831
  Receipt Date: 20110830
  Transmission Date: 20111222
  Serious: Yes (Life-Threatening, Hospitalization)
  Sender: FDA-Public Use
  Company Number: US-B.I. PHARMACEUTICALS,INC./RIDGEFIELD-2011-BP-21123BP

PATIENT
  Sex: Female

DRUGS (9)
  1. PRADAXA [Suspect]
     Indication: ATRIAL FIBRILLATION
     Route: 048
  2. ASPIRIN [Suspect]
     Dosage: 81 MG
     Route: 048
  3. PLAVIX [Suspect]
     Dosage: 75 MG
     Route: 048
  4. JANUVIA [Concomitant]
     Dosage: 50 MG
     Route: 048
  5. NORVASC [Concomitant]
     Dosage: 10 MG
     Route: 048
  6. LISINOPRIL [Concomitant]
     Dosage: 30 MG
     Route: 048
  7. LIPITOR [Concomitant]
     Route: 048
  8. LASIX [Concomitant]
     Dosage: 40 MG
     Route: 048
  9. PEPCID [Concomitant]
     Dosage: 20 MG
     Route: 048

REACTIONS (1)
  - RECTAL HAEMORRHAGE [None]
